FAERS Safety Report 11891357 (Version 1)
Quarter: 2016Q1

REPORT INFORMATION
  Report Type: Spontaneous
  Country: US (occurrence: US)
  Receive Date: 20160106
  Receipt Date: 20160106
  Transmission Date: 20160526
  Serious: Yes (Hospitalization)
  Sender: FDA-Public Use
  Company Number: US-SA-2015SA222517

PATIENT
  Age: 76 Year
  Sex: Male

DRUGS (1)
  1. BCG FOR IMMUNOTHERAPY [Suspect]
     Active Substance: BACILLUS CALMETTE-GUERIN ANTIGEN, UNSPECIFIED SUBSTRAIN
     Indication: BLADDER CANCER
     Route: 043
     Dates: start: 201310, end: 201310

REACTIONS (7)
  - Cough [Unknown]
  - Hypercalcaemia [Unknown]
  - Pancytopenia [Unknown]
  - Abnormal loss of weight [Unknown]
  - Fatigue [Unknown]
  - Disseminated Bacillus Calmette-Guerin infection [Unknown]
  - Night sweats [Unknown]
